FAERS Safety Report 26048080 (Version 1)
Quarter: 2025Q4

REPORT INFORMATION
  Report Type: Spontaneous
  Country: US (occurrence: US)
  Receive Date: 20251114
  Receipt Date: 20251114
  Transmission Date: 20260118
  Serious: No
  Sender: BRISTOL-MYERS SQUIBB COMPANY
  Company Number: US-BRISTOL-MYERS SQUIBB COMPANY-2025-154791

PATIENT
  Sex: Female

DRUGS (5)
  1. ELIQUIS [Suspect]
     Active Substance: APIXABAN
     Indication: Atrial fibrillation
     Route: 048
  2. ROPINIROLE [Concomitant]
     Active Substance: ROPINIROLE
     Indication: Glaucoma
  3. CARBIDOPA [Concomitant]
     Active Substance: CARBIDOPA
     Indication: Parkinsonism
  4. LEVODOPA [Concomitant]
     Active Substance: LEVODOPA
     Indication: Parkinsonism
  5. RYTARY [Concomitant]
     Active Substance: CARBIDOPA\LEVODOPA
     Indication: Parkinsonism

REACTIONS (1)
  - Pain [Unknown]
